FAERS Safety Report 4618663-4 (Version None)
Quarter: 2005Q2

REPORT INFORMATION
  Report Type: 
  Country: None (occurrence: None)
  Receive Date: 20050311
  Receipt Date: 20041115
  Transmission Date: 20051028
  Serious: No
  Sender: FDA-Public Use
  Company Number: 2004-BP-09046BP

PATIENT
  Sex: Female

DRUGS (11)
  1. SPIRIVA [Suspect]
     Indication: CHRONIC OBSTRUCTIVE PULMONARY DISEASE
     Dosage: 18 MCG (18 MCG), IH
     Route: 055
     Dates: start: 20040701
  2. SPIRIVA [Suspect]
     Indication: EMPHYSEMA
     Dosage: 18 MCG (18 MCG), IH
     Route: 055
     Dates: start: 20040701
  3. SPIRIVA [Suspect]
  4. THEO-DUR [Concomitant]
  5. ALBUTEROL [Concomitant]
  6. PULMICORT [Concomitant]
  7. FOSAMAX [Concomitant]
  8. DIOVAN [Concomitant]
  9. OXYGEN (OXYGEN) [Concomitant]
  10. CLOBETOROL [Concomitant]
  11. DOVONEX (CALCIPOTRIOL) [Concomitant]

REACTIONS (2)
  - ACCIDENTAL EXPOSURE [None]
  - DYSPHONIA [None]
